FAERS Safety Report 10666179 (Version 5)
Quarter: 2015Q1

REPORT INFORMATION
  Report Type: Report from Study
  Country: US (occurrence: US)
  Receive Date: 20141219
  Receipt Date: 20150304
  Transmission Date: 20150720
  Serious: Yes (Death, Hospitalization)
  Sender: FDA-Public Use
  Company Number: US-ACTELION-A-US2014-109709

PATIENT
  Age: 41 Year
  Sex: Female

DRUGS (5)
  1. TRACLEER [Suspect]
     Active Substance: BOSENTAN\BOSENTAN MONOHYDRATE
     Dosage: 62.5 MG, BID
     Route: 048
     Dates: start: 201105, end: 20130218
  2. TRACLEER [Suspect]
     Active Substance: BOSENTAN\BOSENTAN MONOHYDRATE
     Indication: PULMONARY ARTERIAL HYPERTENSION
     Dosage: 125 MG, BID
     Route: 048
     Dates: start: 20130219, end: 20150109
  3. SILDENAFIL. [Concomitant]
     Active Substance: SILDENAFIL
  4. COUMADIN [Concomitant]
     Active Substance: WARFARIN SODIUM
  5. TYVASO [Concomitant]
     Active Substance: TREPROSTINIL

REACTIONS (8)
  - Adrenal insufficiency [Unknown]
  - Hypotension [Unknown]
  - Dyspnoea [Recovering/Resolving]
  - Blood glucose decreased [Unknown]
  - Pulmonary fibrosis [Fatal]
  - Hypoxia [Recovering/Resolving]
  - Malaise [Unknown]
  - Pulmonary arterial hypertension [Recovering/Resolving]

NARRATIVE: CASE EVENT DATE: 20141203
